FAERS Safety Report 5313348-3 (Version None)
Quarter: 2007Q1

REPORT INFORMATION
  Report Type: 
  Country: None (occurrence: None)
  Receive Date: 20070201
  Receipt Date: 20061207
  Transmission Date: 20070707
  Serious: No
  Sender: FDA-Public Use
  Company Number: VNL_0331_2006

PATIENT
  Age: 66 Year
  Sex: Male
  Weight: 108.8633 kg

DRUGS (14)
  1. APOKYN [Suspect]
     Indication: PARKINSON'S DISEASE
     Dosage: 0.2 ML ONCE SC
     Route: 058
     Dates: start: 20061204, end: 20061204
  2. APOKYN [Suspect]
     Indication: PARKINSON'S DISEASE
     Dosage: 0.3 ML QDAY SC
     Route: 058
     Dates: start: 20061204, end: 20061201
  3. APOKYN [Suspect]
     Indication: PARKINSON'S DISEASE
     Dosage: 0.4 ML PRN SC
     Route: 058
     Dates: start: 20061201, end: 20061201
  4. APOKYN [Suspect]
     Indication: PARKINSON'S DISEASE
     Dosage: 0.3 ML 3-4X/DAY SC
     Route: 058
     Dates: start: 20061201, end: 20061220
  5. CARBIDOPA AND LEVODOPA [Concomitant]
  6. FUROSEMIDE [Concomitant]
  7. STALEVO 100 [Concomitant]
  8. CLONAZEPAM [Concomitant]
  9. REQUIP [Concomitant]
  10. PEXEVA [Concomitant]
  11. PROVIGIL [Concomitant]
  12. LUNESTA [Concomitant]
  13. NEXIUM [Concomitant]
  14. PARCOPA [Concomitant]

REACTIONS (9)
  - ASTHENIA [None]
  - CONDITION AGGRAVATED [None]
  - DEPRESSED MOOD [None]
  - DIZZINESS [None]
  - HALLUCINATIONS, MIXED [None]
  - HEADACHE [None]
  - NAUSEA [None]
  - RESTLESS LEGS SYNDROME [None]
  - SOMNOLENCE [None]
